FAERS Safety Report 22345808 (Version 2)
Quarter: 2023Q2

REPORT INFORMATION
  Report Type: Spontaneous
  Country: AT (occurrence: AT)
  Receive Date: 20230519
  Receipt Date: 20230617
  Transmission Date: 20230722
  Serious: Yes (Other)
  Sender: FDA-Public Use
  Company Number: AT-TEVA-2023-AT-2887432

PATIENT
  Age: 48 Year
  Sex: Female

DRUGS (4)
  1. AJOVY [Suspect]
     Active Substance: FREMANEZUMAB-VFRM
     Indication: Migraine
     Dosage: THREE TIMES
     Route: 065
     Dates: start: 20230201, end: 20230331
  2. RELPAX [Concomitant]
     Active Substance: ELETRIPTAN HYDROBROMIDE
     Indication: Migraine
     Dosage: AS REQUIRED
     Dates: start: 2018
  3. DULOXETINE [Concomitant]
     Active Substance: DULOXETINE
     Indication: Product used for unknown indication
     Dosage: FORM STRENGTH: 30 MG, AS REQUIRED
  4. MUTAN [Concomitant]
     Indication: Depression
     Dosage: 20 MILLIGRAM DAILY;
     Route: 065
     Dates: start: 202210

REACTIONS (1)
  - Lipodystrophy acquired [Not Recovered/Not Resolved]

NARRATIVE: CASE EVENT DATE: 20230301
